APPROVED DRUG PRODUCT: ESMOLOL HYDROCHLORIDE
Active Ingredient: ESMOLOL HYDROCHLORIDE
Strength: 20MG/ML
Dosage Form/Route: INJECTABLE;INJECTION
Application: A076573 | Product #002
Applicant: FRESENIUS KABI USA LLC
Approved: Aug 23, 2023 | RLD: No | RS: No | Type: DISCN